FAERS Safety Report 18155886 (Version 3)
Quarter: 2020Q4

REPORT INFORMATION
  Report Type: Report from Study
  Country: CA (occurrence: CA)
  Receive Date: 20200817
  Receipt Date: 20201009
  Transmission Date: 20210113
  Serious: Yes (Death)
  Sender: FDA-Public Use
  Company Number: CA-HLS-202001019

PATIENT
  Age: 54 Year
  Sex: Male
  Weight: 75 kg

DRUGS (3)
  1. PALIPERIDONE. [Suspect]
     Active Substance: PALIPERIDONE
     Dosage: 100 MG Q4 WEEKS X2 YEARS
     Route: 030
  2. CLOZARIL [Suspect]
     Active Substance: CLOZAPINE
     Indication: SCHIZOPHRENIA
     Dosage: 350 MG DAILY SINCE }10 YEARS.
     Route: 048
  3. FLUVOXAMINE [Suspect]
     Active Substance: FLUVOXAMINE
     Dosage: 50 MG X1.5 YEARS
     Route: 048

REACTIONS (1)
  - Drug abuse [Fatal]
